FAERS Safety Report 9252495 (Version 1)
Quarter: 2013Q1

REPORT INFORMATION
  Report Type: Spontaneous
  Country: US (occurrence: None)
  Receive Date: 20130305
  Receipt Date: 20130305
  Transmission Date: 20140127
  Serious: Yes (Other)
  Sender: FDA-Public Use
  Company Number: 163-21880-12090653

PATIENT
  Age: 48 Year
  Sex: Male
  Weight: 70.31 kg

DRUGS (3)
  1. REVLIMID [Suspect]
     Indication: PLASMA CELL MYELOMA
     Dosage: 5MG, 28 IN 28 D, PO
     Route: 048
     Dates: start: 20091223
  2. ACYCLOVIR (ACICLOVIR) (ACICLOVIR) [Concomitant]
  3. LEXAPRO  (ESCITALOPRAM OXALATE) [Concomitant]

REACTIONS (1)
  - Nasopharyngitis [None]
